FAERS Safety Report 5155839-4 (Version None)
Quarter: 2006Q4

REPORT INFORMATION
  Report Type: 
  Country: None (occurrence: None)
  Receive Date: 20061120
  Receipt Date: 20061120
  Transmission Date: 20070319
  Serious: Yes (Hospitalization, Other)
  Sender: FDA-Public Use
  Company Number: None

PATIENT
  Age: 84 Year
  Sex: Female

DRUGS (16)
  1. TICLID [Suspect]
     Indication: CORONARY ARTERY DISEASE
     Dosage: 250 MG  BID  PO
     Route: 048
     Dates: start: 20050324, end: 20050509
  2. FOSMAX [Concomitant]
  3. HYZAAR [Concomitant]
  4. NASONEX [Concomitant]
  5. NORVASC [Concomitant]
  6. TIMOTOPIC [Concomitant]
  7. GLUCOSAMINE [Concomitant]
  8. CALCIUM [Concomitant]
  9. OCUVITE [Concomitant]
  10. PEPCID AC [Concomitant]
  11. CLARINEX [Concomitant]
  12. IRON TABLETS [Concomitant]
  13. LIPITOR [Concomitant]
  14. ASPIRIN [Concomitant]
  15. TOPROL-XL [Concomitant]
  16. KEFLEX [Concomitant]

REACTIONS (3)
  - FEBRILE NEUTROPENIA [None]
  - MOUTH ULCERATION [None]
  - PURULENCE [None]
